FAERS Safety Report 7515934-9 (Version None)
Quarter: 2011Q2

REPORT INFORMATION
  Report Type: 
  Country: None (occurrence: None)
  Receive Date: 20110601
  Receipt Date: 20110527
  Transmission Date: 20111010
  Serious: Yes (Hospitalization)
  Sender: FDA-Public Use
  Company Number: US-BAYER-2011-045880

PATIENT
  Age: 72 Year
  Sex: Male

DRUGS (3)
  1. ANTI-DIABETICS [Concomitant]
  2. INSULIN [Concomitant]
     Route: 058
  3. SORAFENIB (RAF KINASE INHIBITOR) [Suspect]
     Indication: HEPATIC NEOPLASM MALIGNANT
     Dosage: 200 MG, BID
     Route: 048
     Dates: start: 20110513, end: 20110519

REACTIONS (6)
  - BLOOD POTASSIUM INCREASED [None]
  - PRURITUS GENERALISED [None]
  - HAEMOPTYSIS [None]
  - HEPATOMEGALY [None]
  - JAUNDICE [None]
  - RASH [None]
